FAERS Safety Report 10563463 (Version 2)
Quarter: 2014Q4

REPORT INFORMATION
  Report Type: Spontaneous
  Country: IT (occurrence: IT)
  Receive Date: 20141104
  Receipt Date: 20141118
  Transmission Date: 20150529
  Serious: Yes (Hospitalization, Other)
  Sender: FDA-Public Use
  Company Number: IT-JNJFOC-20141100251

PATIENT
  Age: 25 Year
  Sex: Female

DRUGS (2)
  1. PALEXIA [Suspect]
     Active Substance: TAPENTADOL HYDROCHLORIDE
     Indication: INTERVERTEBRAL DISC PROTRUSION
     Route: 048
     Dates: start: 20141022, end: 20141022
  2. PATROL [Suspect]
     Active Substance: ACETAMINOPHEN\TRAMADOL HYDROCHLORIDE
     Indication: INTERVERTEBRAL DISC PROTRUSION
     Route: 048
     Dates: start: 20141023, end: 20141023

REACTIONS (7)
  - Oxygen saturation abnormal [Recovered/Resolved]
  - Intentional overdose [Recovered/Resolved]
  - Hypotension [Recovered/Resolved]
  - Drug abuse [Recovered/Resolved]
  - Respiratory depression [Recovered/Resolved]
  - Vomiting [Recovered/Resolved]
  - Asthenia [Recovered/Resolved]

NARRATIVE: CASE EVENT DATE: 20141022
